FAERS Safety Report 6310426-7 (Version None)
Quarter: 2009Q3

REPORT INFORMATION
  Report Type: 
  Country: None (occurrence: None)
  Receive Date: 20090814
  Receipt Date: 20090803
  Transmission Date: 20100115
  Serious: Yes (Life-Threatening, Hospitalization, Disabling)
  Sender: FDA-Public Use
  Company Number: FR-PFIZER INC-2008041926

PATIENT
  Age: 78 Year

DRUGS (4)
  1. XANAX [Suspect]
     Dosage: UNK
     Route: 048
     Dates: start: 20030101, end: 20080222
  2. GLEEVEC [Suspect]
     Indication: GASTROINTESTINAL STROMAL TUMOUR
     Dates: start: 20070201, end: 20080222
  3. SERESTA [Suspect]
     Route: 048
     Dates: start: 20030101, end: 20080222
  4. IMODIUM [Concomitant]
     Dosage: UNK
     Route: 048
     Dates: start: 20040101, end: 20080222

REACTIONS (4)
  - CYTOLYTIC HEPATITIS [None]
  - HEPATIC FAILURE [None]
  - JAUNDICE [None]
  - TRANSAMINASES INCREASED [None]
